FAERS Safety Report 5587213-0 (Version None)
Quarter: 2008Q1

REPORT INFORMATION
  Report Type: 
  Country: None (occurrence: None)
  Receive Date: 20080110
  Receipt Date: 20070510
  Transmission Date: 20080703
  Serious: No
  Sender: FDA-Public Use
  Company Number: US-BRISTOL-MYERS SQUIBB COMPANY-13775960

PATIENT
  Age: 63 Year
  Sex: Female

DRUGS (8)
  1. CARDIOLITE [Suspect]
     Dates: start: 20070503, end: 20070509
  2. PREDNISONE TAB [Concomitant]
  3. PREMARIN [Concomitant]
  4. FLONASE [Concomitant]
  5. ZYRTEC [Concomitant]
  6. SUDAFED 12 HOUR [Concomitant]
  7. DIAZEPAM [Concomitant]
  8. COMBIVENT [Concomitant]

REACTIONS (3)
  - ABDOMINAL PAIN [None]
  - BACK PAIN [None]
  - DIARRHOEA [None]
